FAERS Safety Report 7392841-6 (Version None)
Quarter: 2011Q2

REPORT INFORMATION
  Report Type: 
  Country: None (occurrence: None)
  Receive Date: 20110404
  Receipt Date: 20110321
  Transmission Date: 20111010
  Serious: Yes (Hospitalization, Other)
  Sender: FDA-Public Use
  Company Number: US-ACTELION-A-US2011-44619

PATIENT

DRUGS (3)
  1. COUMADIN [Concomitant]
  2. TADALAFIL [Concomitant]
  3. TRACLEER [Suspect]
     Indication: PULMONARY ARTERIAL HYPERTENSION
     Dosage: UNK
     Route: 048
     Dates: start: 20040615

REACTIONS (8)
  - PNEUMONIA [None]
  - HEADACHE [None]
  - LOSS OF CONSCIOUSNESS [None]
  - FALL [None]
  - FACE INJURY [None]
  - DIZZINESS [None]
  - SWELLING FACE [None]
  - LIVER TENDERNESS [None]
